FAERS Safety Report 20491768 (Version 1)
Quarter: 2022Q1

REPORT INFORMATION
  Report Type: Report from Study
  Country: US (occurrence: US)
  Receive Date: 20220218
  Receipt Date: 20220218
  Transmission Date: 20220423
  Serious: Yes (Other)
  Sender: FDA-Public Use
  Company Number: US-AZURITY PHARMACEUTICALS, INC.-US-2022ARB000201

PATIENT
  Sex: Male

DRUGS (2)
  1. TOPIRAMATE [Suspect]
     Active Substance: TOPIRAMATE
     Indication: Neonatal seizure
     Dosage: 3.2 MG/KG, QD
  2. TOPIRAMATE [Suspect]
     Active Substance: TOPIRAMATE
     Dosage: 12 MG/KG, QD

REACTIONS (1)
  - Necrotising enterocolitis neonatal [Unknown]
